FAERS Safety Report 5428017-9 (Version None)
Quarter: 2007Q3

REPORT INFORMATION
  Report Type: 
  Country: None (occurrence: None)
  Receive Date: 20070731
  Receipt Date: 20070521
  Transmission Date: 20080115
  Serious: No
  Sender: FDA-Public Use
  Company Number: US200705005477

PATIENT
  Age: 62 Year
  Sex: Female
  Weight: 95.2 kg

DRUGS (4)
  1. BYETTA [Suspect]
     Indication: TYPE 2 DIABETES MELLITUS
     Dosage: 5 UG, 2/D, SUBCUTANEOUS
     Route: 058
     Dates: start: 20061001, end: 20061101
  2. EXENATIDE [Concomitant]
  3. METFORMIN HCL [Concomitant]
  4. GLIPIZIDE [Concomitant]

REACTIONS (11)
  - ABDOMINAL PAIN UPPER [None]
  - BLOOD GLUCOSE DECREASED [None]
  - CYSTITIS [None]
  - DYSURIA [None]
  - FATIGUE [None]
  - FEELING ABNORMAL [None]
  - HYPERHIDROSIS [None]
  - PRURITUS [None]
  - SOMNOLENCE [None]
  - TREMOR [None]
  - WEIGHT DECREASED [None]
